FAERS Safety Report 12178850 (Version 2)
Quarter: 2016Q2

REPORT INFORMATION
  Report Type: Spontaneous
  Country: US (occurrence: US)
  Receive Date: 20160314
  Receipt Date: 20160607
  Transmission Date: 20160815
  Serious: Yes (Other)
  Sender: FDA-Public Use
  Company Number: US-SA-2016SA010574

PATIENT
  Age: 68 Year
  Sex: Male

DRUGS (5)
  1. NOVOLOG [Concomitant]
     Active Substance: INSULIN ASPART
     Dosage: SLIDING SCALE
  2. LANTUS [Concomitant]
     Active Substance: INSULIN GLARGINE
     Dosage: VIALS DOSE:100 UNIT(S)
  3. SOLOSTAR [Concomitant]
     Active Substance: DEVICE
     Dates: start: 20160111
  4. TOUJEO [Suspect]
     Active Substance: INSULIN GLARGINE
     Indication: TYPE 2 DIABETES MELLITUS
     Dosage: DOSE:40 UNIT(S)
     Route: 065
     Dates: start: 20160111
  5. LANTUS [Concomitant]
     Active Substance: INSULIN GLARGINE
     Dosage: VIALS DOSE:40 UNIT(S)

REACTIONS (3)
  - Blood glucose increased [Recovering/Resolving]
  - Drug administration error [Unknown]
  - Product use issue [Unknown]

NARRATIVE: CASE EVENT DATE: 201601
